FAERS Safety Report 15742217 (Version 1)
Quarter: 2018Q4

REPORT INFORMATION
  Report Type: Spontaneous
  Country: US (occurrence: US)
  Receive Date: 20181219
  Receipt Date: 20181219
  Transmission Date: 20190205
  Serious: Yes (Other)
  Sender: FDA-Public Use
  Company Number: US-ANIPHARMA-2018-US-021306

PATIENT
  Age: 78 Year
  Sex: Male
  Weight: 108.86 kg

DRUGS (9)
  1. VITAMIN B12 [Concomitant]
     Active Substance: CYANOCOBALAMIN
  2. CARDIZEM CD [Concomitant]
     Active Substance: DILTIAZEM HYDROCHLORIDE
  3. CLOPIDOGREL BISULFATE. [Concomitant]
     Active Substance: CLOPIDOGREL BISULFATE
  4. LUPRON DEPOT [Suspect]
     Active Substance: LEUPROLIDE ACETATE
     Dosage: (45 MG, 1 IN 6 - 2)
     Route: 030
     Dates: start: 201803
  5. VITAMIN D [Concomitant]
     Active Substance: CHOLECALCIFEROL
  6. ROSUVASTATIN. [Concomitant]
     Active Substance: ROSUVASTATIN
  7. GABAPENTIN. [Concomitant]
     Active Substance: GABAPENTIN
  8. KLOR-CON [Concomitant]
     Active Substance: POTASSIUM CHLORIDE
  9. CASODEX [Suspect]
     Active Substance: BICALUTAMIDE
     Indication: PROSTATE CANCER
     Route: 065
     Dates: start: 201803

REACTIONS (5)
  - Loss of consciousness [Unknown]
  - Feeling hot [Recovering/Resolving]
  - Syncope [Unknown]
  - Blood pressure decreased [Recovering/Resolving]
  - Hyperhidrosis [Recovering/Resolving]

NARRATIVE: CASE EVENT DATE: 201804
